FAERS Safety Report 23879715 (Version 4)
Quarter: 2024Q3

REPORT INFORMATION
  Report Type: Spontaneous
  Country: US (occurrence: US)
  Receive Date: 20240521
  Receipt Date: 20240916
  Transmission Date: 20241017
  Serious: No
  Sender: ASTELLAS
  Company Number: US-ASTELLAS-2024US005423

PATIENT
  Age: 62 Year
  Sex: Female

DRUGS (3)
  1. VEOZAH [Suspect]
     Active Substance: FEZOLINETANT
     Indication: Menopausal symptoms
     Dosage: 45 MG, ONCE DAILY
     Route: 048
     Dates: start: 202310, end: 20231007
  2. VEOZAH [Suspect]
     Active Substance: FEZOLINETANT
     Dosage: UNK UNK(1/2 TABLET), ONCE DAILY
     Route: 048
     Dates: start: 20231010
  3. VEOZAH [Suspect]
     Active Substance: FEZOLINETANT
     Dosage: UNK UNK(1/4 TABLET), ONCE DAILY
     Route: 048
     Dates: start: 20231012, end: 20231015

REACTIONS (3)
  - Drug intolerance [Unknown]
  - Dizziness [Recovered/Resolved]
  - Wrong technique in product usage process [Unknown]

NARRATIVE: CASE EVENT DATE: 20231001
